FAERS Safety Report 20316004 (Version 1)
Quarter: 2022Q1

REPORT INFORMATION
  Report Type: Spontaneous
  Country: US (occurrence: None)
  Receive Date: 20220110
  Receipt Date: 20220110
  Transmission Date: 20220423
  Serious: No
  Sender: FDA-Public Use
  Company Number: US-ROCHE-2832397

PATIENT
  Sex: Female

DRUGS (4)
  1. RITUXAN [Suspect]
     Active Substance: RITUXIMAB
     Indication: Rheumatoid arthritis
     Route: 041
  2. ACTEMRA [Suspect]
     Active Substance: TOCILIZUMAB
     Indication: Rheumatoid arthritis
     Route: 041
  3. SIMPONI ARIA [Suspect]
     Active Substance: GOLIMUMAB
     Indication: Rheumatoid arthritis
     Route: 065
  4. ORENCIA [Suspect]
     Active Substance: ABATACEPT
     Indication: Rheumatoid arthritis
     Route: 065

REACTIONS (6)
  - Illness [Unknown]
  - Pyrexia [Unknown]
  - Chills [Unknown]
  - Nasal congestion [Unknown]
  - Anosmia [Unknown]
  - Ageusia [Unknown]
